FAERS Safety Report 20930199 (Version 1)
Quarter: 2022Q2

REPORT INFORMATION
  Report Type: Report from Study
  Country: US (occurrence: US)
  Receive Date: 20220608
  Receipt Date: 20220608
  Transmission Date: 20220720
  Serious: Yes (Hospitalization, Other)
  Sender: FDA-Public Use
  Company Number: US-BIOVITRUM-2021US9864

PATIENT
  Sex: Female

DRUGS (1)
  1. KINERET [Suspect]
     Active Substance: ANAKINRA
     Indication: Rheumatoid arthritis
     Route: 058
     Dates: start: 20210710

REACTIONS (5)
  - Lyme disease [Unknown]
  - Hypersensitivity [Unknown]
  - Peripheral swelling [Unknown]
  - Rash [Unknown]
  - Product dose omission issue [Unknown]
